FAERS Safety Report 4350640-3 (Version None)
Quarter: 2004Q2

REPORT INFORMATION
  Report Type: 
  Country: None (occurrence: None)
  Receive Date: 20040429
  Receipt Date: 20040421
  Transmission Date: 20050107
  Serious: Yes (Hospitalization)
  Sender: FDA-Public Use
  Company Number: 2004026775

PATIENT
  Age: 51 Year
  Sex: Male

DRUGS (1)
  1. MINOXIDIL [Suspect]
     Indication: ALOPECIA
     Dosage: 1 ML, TWICE DAILY, TOPICAL
     Route: 061
     Dates: start: 19991001, end: 20040329

REACTIONS (1)
  - ANGINA PECTORIS [None]
